FAERS Safety Report 10168638 (Version 1)
Quarter: 2014Q2

REPORT INFORMATION
  Report Type: Report from Study
  Country: RS (occurrence: RS)
  Receive Date: 20140513
  Receipt Date: 20140513
  Transmission Date: 20141212
  Serious: Yes (Death)
  Sender: FDA-Public Use
  Company Number: RS-ROCHE-1399775

PATIENT
  Sex: Female
  Weight: 62 kg

DRUGS (1)
  1. CAPECITABINE [Suspect]
     Indication: ADENOCARCINOMA
     Route: 065
     Dates: start: 20080402, end: 20080413

REACTIONS (1)
  - Embolism [Fatal]
